FAERS Safety Report 10021891 (Version 7)
Quarter: 2014Q2

REPORT INFORMATION
  Report Type: Spontaneous
  Country: US (occurrence: None)
  Receive Date: 20140313
  Receipt Date: 20140529
  Transmission Date: 20141212
  Serious: Yes (Hospitalization)
  Sender: FDA-Public Use
  Company Number: KAD201403-000307

PATIENT
  Age: 63 Year
  Sex: Male
  Weight: 90.3 kg

DRUGS (14)
  1. RIBAVIRIN [Suspect]
     Route: 048
     Dates: start: 20131202, end: 20140221
  2. SOFOSBUVIR/LEDIPASVIR [Suspect]
     Route: 048
     Dates: start: 20131202, end: 20140223
  3. VITAMIN D3 (CHOLECALCIFEROL) [Concomitant]
  4. TAMSULOSIN (TAMSULOSIN) [Concomitant]
  5. HUMULIN N (INSULIN) [Concomitant]
  6. BISACODYL (BISACODYL) [Concomitant]
  7. LOSARTAN (LOSARTAN) [Concomitant]
  8. METFORMIN (METFORMIN) [Concomitant]
  9. NEURONTIN (GABAPENTIN) [Concomitant]
  10. NADOLOL (NADOLOL) [Concomitant]
  11. OXYBUTININ (OXYBUTININ) [Concomitant]
  12. PRAVASTATIN (PRAVASTATIN) [Concomitant]
  13. CYCLOSPORIN (CYCLOSPORIN) [Concomitant]
  14. MULTIVITAMIN (MULTIVITAMIN) [Concomitant]

REACTIONS (10)
  - Portal vein thrombosis [None]
  - Gastric ulcer [None]
  - Atrioventricular block first degree [None]
  - Electrocardiogram ST segment abnormal [None]
  - Varices oesophageal [None]
  - Portal hypertensive gastropathy [None]
  - Duodenal ulcer [None]
  - Mesenteric vein thrombosis [None]
  - International normalised ratio increased [None]
  - Sinus bradycardia [None]
